FAERS Safety Report 22144811 (Version 1)
Quarter: 2023Q1

REPORT INFORMATION
  Report Type: Spontaneous
  Country: US (occurrence: None)
  Receive Date: 20230328
  Receipt Date: 20230328
  Transmission Date: 20230418
  Serious: No
  Sender: FDA-Public Use
  Company Number: 2023A054362

PATIENT
  Sex: Female
  Weight: 70.3 kg

DRUGS (1)
  1. BRILINTA [Suspect]
     Active Substance: TICAGRELOR
     Indication: Cardiac disorder
     Route: 048
     Dates: start: 202206

REACTIONS (4)
  - Mass [Unknown]
  - Pain [Unknown]
  - Pyrexia [Unknown]
  - Contusion [Unknown]
